FAERS Safety Report 25523471 (Version 1)
Quarter: 2025Q3

REPORT INFORMATION
  Report Type: Spontaneous
  Country: US (occurrence: US)
  Receive Date: 20250707
  Receipt Date: 20250707
  Transmission Date: 20251021
  Serious: Yes (Life-Threatening)
  Sender: Unknown Manufacturer
  Company Number: US-MLMSERVICE-20250620-PI548927-00196-1

PATIENT
  Age: 3 Year
  Sex: Female
  Weight: 13.7 kg

DRUGS (4)
  1. LEVETIRACETAM [Suspect]
     Active Substance: LEVETIRACETAM
     Indication: Seizure
  2. CLOBAZAM [Concomitant]
     Active Substance: CLOBAZAM
     Indication: Seizure
  3. VALPROIC ACID [Concomitant]
     Active Substance: VALPROIC ACID
     Indication: Seizure
  4. LACOSAMIDE [Concomitant]
     Active Substance: LACOSAMIDE
     Indication: Seizure

REACTIONS (3)
  - Drug ineffective [Unknown]
  - Agitation [Unknown]
  - Behaviour disorder [Unknown]
